FAERS Safety Report 4648066-8 (Version None)
Quarter: 2005Q2

REPORT INFORMATION
  Report Type: 
  Country: None (occurrence: None)
  Receive Date: 20050428
  Receipt Date: 20050419
  Transmission Date: 20051028
  Serious: Yes (Hospitalization)
  Sender: FDA-Public Use
  Company Number: NO-MERCK-0504NOR00031

PATIENT
  Age: 49 Year
  Sex: Male

DRUGS (3)
  1. VIOXX [Suspect]
     Indication: ANKYLOSING SPONDYLITIS
     Route: 048
     Dates: start: 20030401, end: 20030429
  2. VIOXX [Suspect]
     Route: 048
     Dates: start: 20010919, end: 20030401
  3. DEXCHLORPHENIRAMINE MALEATE [Concomitant]
     Indication: HYPERSENSITIVITY
     Route: 048
     Dates: start: 20000609

REACTIONS (3)
  - CEREBRAL INFARCTION [None]
  - CEREBRAL ISCHAEMIA [None]
  - HYPERTENSION [None]
